FAERS Safety Report 20410910 (Version 2)
Quarter: 2022Q3

REPORT INFORMATION
  Report Type: Report from Study
  Country: AU (occurrence: AU)
  Receive Date: 20220201
  Receipt Date: 20220926
  Transmission Date: 20221027
  Serious: Yes (Other)
  Sender: FDA-Public Use
  Company Number: AU-NOVARTISPH-NVSC2022AU021103

PATIENT
  Age: 79 Year
  Sex: Male

DRUGS (4)
  1. IMATINIB [Suspect]
     Active Substance: IMATINIB
     Indication: Chronic myeloid leukaemia
     Dosage: UNK
     Route: 065
     Dates: start: 20180514
  2. IMATINIB [Suspect]
     Active Substance: IMATINIB
     Dosage: 400 MG, QD
     Route: 065
     Dates: start: 20210103
  3. IMATINIB [Suspect]
     Active Substance: IMATINIB
     Dosage: 100 MG, QD
     Route: 065
     Dates: start: 20210111
  4. IMATINIB [Suspect]
     Active Substance: IMATINIB
     Dosage: 200 MG, QD
     Route: 065
     Dates: start: 20220117, end: 20220131

REACTIONS (14)
  - Prostate cancer [Unknown]
  - Drug intolerance [Unknown]
  - Disturbance in attention [Unknown]
  - Thoracic outlet syndrome [Unknown]
  - Benign prostatic hyperplasia [Unknown]
  - Hypercholesterolaemia [Unknown]
  - Adjustment disorder with depressed mood [Recovered/Resolved]
  - Pleural effusion [Unknown]
  - Anxiety disorder [Recovered/Resolved]
  - Sciatica [Unknown]
  - Oedema [Unknown]
  - Fatigue [Unknown]
  - Cytogenetic analysis abnormal [Unknown]
  - Loss of therapeutic response [Unknown]

NARRATIVE: CASE EVENT DATE: 20200120
